FAERS Safety Report 13369133 (Version 1)
Quarter: 2017Q1

REPORT INFORMATION
  Report Type: Spontaneous
  Country: PK (occurrence: PK)
  Receive Date: 20170324
  Receipt Date: 20170324
  Transmission Date: 20170429
  Serious: Yes (Death)
  Sender: FDA-Public Use
  Company Number: PK-ASTELLAS-2017US011414

PATIENT
  Age: 54 Year
  Sex: Male

DRUGS (1)
  1. TARCEVA [Suspect]
     Active Substance: ERLOTINIB HYDROCHLORIDE
     Indication: PHARYNGEAL NEOPLASM
     Dosage: TWO TABLETS IN TWO DAYS INTERVAL (150 MG, ONCE DAILY)
     Route: 048

REACTIONS (1)
  - Death [Fatal]
